FAERS Safety Report 8594016 (Version 4)
Quarter: 2012Q4

REPORT INFORMATION
  Report Type: Report from Study
  Country: FR (occurrence: FR)
  Receive Date: 20120604
  Receipt Date: 20121002
  Transmission Date: 20130627
  Serious: Yes (Death, Life-Threatening, Hospitalization, Other)
  Sender: FDA-Public Use
  Company Number: FR-CELGENEUS-056-21880-12052516

PATIENT
  Age: 65 Year
  Sex: Male

DRUGS (10)
  1. REVLIMID [Suspect]
     Indication: B-CELL LYMPHOMA
     Dosage: 25 Milligram
     Route: 048
     Dates: start: 20111117, end: 20111222
  2. RITUXIMAB [Concomitant]
     Indication: B-CELL LYMPHOMA
     Route: 065
     Dates: start: 20111117, end: 20120304
  3. CYCLOPHOSPHAMID [Concomitant]
     Indication: B-CELL LYMPHOMA
     Route: 065
     Dates: start: 20111117, end: 20120304
  4. DOXORUBICIN [Concomitant]
     Indication: B-CELL LYMPHOMA
     Route: 065
     Dates: start: 20111117, end: 20120304
  5. VINCRISTINE [Concomitant]
     Indication: B-CELL LYMPHOMA
     Route: 065
     Dates: start: 20111117, end: 20120304
  6. PREDNISONE [Concomitant]
     Indication: B-CELL LYMPHOMA
     Route: 065
     Dates: start: 20111117, end: 20120304
  7. ENTERAL FOOD [Concomitant]
     Indication: WEIGHT LOSS
     Route: 065
  8. ACETYLOYSTEINE [Concomitant]
     Indication: COUGH
     Route: 065
     Dates: start: 20120229
  9. OXYCODONE [Concomitant]
     Indication: ABDOMINAL PAIN
     Route: 065
     Dates: start: 20120209
  10. SODIUM ALGINATE [Concomitant]
     Indication: EPIGASTRALGIA
     Route: 065
     Dates: start: 20120116

REACTIONS (1)
  - Adenocarcinoma gastric [Fatal]
